FAERS Safety Report 20013725 (Version 1)
Quarter: 2021Q4

REPORT INFORMATION
  Report Type: Spontaneous
  Country: US (occurrence: US)
  Receive Date: 20211029
  Receipt Date: 20211029
  Transmission Date: 20220303
  Serious: Yes (Hospitalization)
  Sender: FDA-Public Use
  Company Number: US-TEVA-2021-US-1969754

PATIENT
  Age: 64 Year
  Sex: Female

DRUGS (1)
  1. AZACITIDINE [Suspect]
     Active Substance: AZACITIDINE
     Indication: Myelodysplastic syndrome
     Dosage: SUBCUTANEOUSLY DAILY FOR 7 DAYS EVERY 28 DAYS.
     Route: 058

REACTIONS (1)
  - Pericarditis [Recovered/Resolved]
